FAERS Safety Report 8678361 (Version 2)
Quarter: 2012Q4

REPORT INFORMATION
  Report Type: 
  Country: BE (occurrence: BE)
  Receive Date: 20120723
  Receipt Date: 20121113
  Transmission Date: 20130627
  Serious: Yes (Death)
  Sender: FDA-Public Use
  Company Number: BE-ALEXION PHARMACEUTICALS INC.-A201201360

PATIENT
  Age: 48 Year
  Sex: Female

DRUGS (3)
  1. SOLIRIS 300MG [Suspect]
     Indication: PAROXYSMAL NOCTURNAL HAEMOGLOBINURIA
     Dosage: 600 mg, UNK
     Route: 042
     Dates: start: 20081016
  2. SOLIRIS 300MG [Suspect]
     Dosage: 900 mg, UNK
     Route: 042
     Dates: start: 20081114, end: 20120704
  3. PREDNISONE [Concomitant]
     Dosage: 8-12 mg qd

REACTIONS (1)
  - Death [Fatal]
